FAERS Safety Report 4638517-7 (Version None)
Quarter: 2005Q2

REPORT INFORMATION
  Report Type: 
  Country: None (occurrence: None)
  Receive Date: 20050418
  Receipt Date: 20050406
  Transmission Date: 20051028
  Serious: Yes (Death, Life-Threatening, Hospitalization, Other)
  Sender: FDA-Public Use
  Company Number: 2004086396

PATIENT
  Age: 76 Year
  Sex: Male

DRUGS (10)
  1. LIPITOR [Suspect]
     Indication: HYPERCHOLESTEROLAEMIA
     Dosage: 40 MG (1 IN 1 D), ORAL
     Route: 048
     Dates: start: 20040507, end: 20040523
  2. DIFLUCAN [Suspect]
     Indication: PROPHYLAXIS
     Dosage: 150 MG (1 D), ORAL
     Route: 048
     Dates: start: 20040101, end: 20040101
  3. BISOPROLOL (BISOPROLOL) [Concomitant]
  4. ESOMEPRAZOLE (ESOMEPRAZOLE) [Concomitant]
  5. WARFARIN SODIUM [Concomitant]
  6. DOXYCYCLINE HYDROCHLORIDE (DOXYCYCLINE HYDROCHLORIDE) [Concomitant]
  7. PREDNISONE [Concomitant]
  8. FUSIDATE SODIUM (FUSIDATE SODIUM) [Concomitant]
  9. DIGOXIN [Concomitant]
  10. LEVOFLOXACIN [Concomitant]

REACTIONS (15)
  - CARDIAC FAILURE [None]
  - CARDIOMEGALY [None]
  - CEREBRAL DISORDER [None]
  - COAGULOPATHY [None]
  - DIALYSIS [None]
  - DRUG INTERACTION [None]
  - HYPERAEMIA [None]
  - HYPOTENSION [None]
  - HYPOTONIA [None]
  - MULTI-ORGAN FAILURE [None]
  - MYOCARDIAL INFARCTION [None]
  - PULMONARY CONGESTION [None]
  - RENAL FAILURE [None]
  - RHABDOMYOLYSIS [None]
  - TACHYCARDIA [None]
